FAERS Safety Report 20219568 (Version 3)
Quarter: 2022Q1

REPORT INFORMATION
  Report Type: Spontaneous
  Country: US (occurrence: US)
  Receive Date: 20211222
  Receipt Date: 20220216
  Transmission Date: 20220424
  Serious: Yes (Other)
  Sender: FDA-Public Use
  Company Number: US-PFIZER INC-202101814902

PATIENT
  Age: 69 Year
  Sex: Male
  Weight: 76.2 kg

DRUGS (3)
  1. VYNDAMAX [Suspect]
     Active Substance: TAFAMIDIS
     Indication: Amyloidosis
     Dosage: 61 MG, 1X/DAY
     Dates: start: 202008
  2. EPLERENONE [Concomitant]
     Active Substance: EPLERENONE
     Indication: Fluid intake reduced
     Dosage: 50 MG, 2X/DAY (50 MG TWICE A DAY)
  3. TORSEMIDE [Concomitant]
     Active Substance: TORSEMIDE
     Indication: Fluid intake reduced
     Dosage: UNK (20 MG PILL, 3 IN THE EVENING, SO 60 MG, AND THEN 2 IN THE MORNING, 40 MG)

REACTIONS (2)
  - Heart transplant [Unknown]
  - Expired product administered [Unknown]

NARRATIVE: CASE EVENT DATE: 20211201
